FAERS Safety Report 23729883 (Version 3)
Quarter: 2025Q1

REPORT INFORMATION
  Report Type: Spontaneous
  Country: US (occurrence: US)
  Receive Date: 20240411
  Receipt Date: 20250327
  Transmission Date: 20250409
  Serious: Yes (Other)
  Sender: NOVO NORDISK
  Company Number: US-NOVOPROD-1193240

PATIENT
  Age: 54 Year
  Sex: Female

DRUGS (3)
  1. OZEMPIC [Suspect]
     Active Substance: SEMAGLUTIDE
     Route: 058
     Dates: start: 202308
  2. OZEMPIC [Suspect]
     Active Substance: SEMAGLUTIDE
     Indication: Type 2 diabetes mellitus
     Route: 058
     Dates: start: 202308
  3. OZEMPIC [Suspect]
     Active Substance: SEMAGLUTIDE
     Dosage: 2 MG, QW
     Route: 058

REACTIONS (4)
  - Shock hypoglycaemic [Not Recovered/Not Resolved]
  - Drug effect less than expected [Unknown]
  - Blood glucose fluctuation [Unknown]
  - Off label use [Not Recovered/Not Resolved]

NARRATIVE: CASE EVENT DATE: 20240301
